FAERS Safety Report 4869229-2 (Version None)
Quarter: 2005Q4

REPORT INFORMATION
  Report Type: 
  Country: None (occurrence: None)
  Receive Date: 20051228
  Receipt Date: 20051228
  Transmission Date: 20060501
  Serious: Yes (Death)
  Sender: FDA-Public Use
  Company Number: None

PATIENT
  Age: 39 Day
  Sex: Female
  Weight: 4.536 kg

DRUGS (1)
  1. FIORICET W/ CODEINE [Suspect]
     Indication: MIGRAINE
     Dosage: 3 CAPSULES    4-6 HOURS   PO
     Route: 048
     Dates: start: 20050913, end: 20050916

REACTIONS (2)
  - DRUG EXPOSURE VIA BREAST MILK [None]
  - TOXICOLOGIC TEST ABNORMAL [None]
